FAERS Safety Report 19742929 (Version 1)
Quarter: 2021Q3

REPORT INFORMATION
  Report Type: Spontaneous
  Country: US (occurrence: US)
  Receive Date: 20210823
  Receipt Date: 20210823
  Transmission Date: 20211014
  Serious: Yes (Death)
  Sender: FDA-Public Use
  Company Number: None

PATIENT
  Age: 64 Year
  Sex: Male

DRUGS (9)
  1. ALECENSA [Suspect]
     Active Substance: ALECTINIB HYDROCHLORIDE
     Indication: LARYNGEAL CANCER
     Route: 048
     Dates: start: 20210609, end: 20210822
  2. ELQUIS [Concomitant]
  3. CHLORHEX [Concomitant]
     Active Substance: CHLORHEXIDINE GLUCONATE
  4. FOLIC ACID. [Concomitant]
     Active Substance: FOLIC ACID
  5. ZOLPIDEM [Concomitant]
     Active Substance: ZOLPIDEM TARTRATE
  6. TRAZODONE [Concomitant]
     Active Substance: TRAZODONE HYDROCHLORIDE
  7. PANTOPRAZOLE [Concomitant]
     Active Substance: PANTOPRAZOLE
  8. ALBUTEROL. [Concomitant]
     Active Substance: ALBUTEROL
  9. MORPHINE [Concomitant]
     Active Substance: MORPHINE

REACTIONS (1)
  - Death [None]

NARRATIVE: CASE EVENT DATE: 20210822
